FAERS Safety Report 5025073-7 (Version None)
Quarter: 2006Q2

REPORT INFORMATION
  Report Type: 
  Country: None (occurrence: None)
  Receive Date: 20060426
  Receipt Date: 20060119
  Transmission Date: 20061013
  Serious: Yes (Other)
  Sender: FDA-Public Use
  Company Number: 2006011298

PATIENT
  Age: 76 Year
  Sex: Male
  Weight: 99.7913 kg

DRUGS (4)
  1. LYRICA [Suspect]
     Indication: HERPES ZOSTER
     Dosage: 225 MG (75 MG,3 IN 1 D)
     Dates: start: 20051126
  2. HYDROCODONE BITARTRATE [Concomitant]
  3. NEXIUM [Concomitant]
  4. VITAMINS (VITAMINS) [Concomitant]

REACTIONS (4)
  - BOWEL SOUNDS ABNORMAL [None]
  - CONSTIPATION [None]
  - FLATULENCE [None]
  - NOCTURIA [None]
